FAERS Safety Report 7047917-X (Version None)
Quarter: 2010Q4

REPORT INFORMATION
  Report Type: 
  Country: None (occurrence: None)
  Receive Date: 20101014
  Receipt Date: 20101014
  Transmission Date: 20110411
  Serious: Yes (Hospitalization)
  Sender: FDA-Public Use
  Company Number: None

PATIENT
  Sex: Male
  Weight: 87.31 kg

DRUGS (3)
  1. ERBITUX [Suspect]
     Dosage: 250 MG
     Dates: end: 20101004
  2. TAXOL [Suspect]
     Dosage: 150 MG
     Dates: end: 20100927
  3. CARBOPLATIN [Suspect]
     Dosage: 653 MG
     Dates: end: 20100927

REACTIONS (2)
  - CHILLS [None]
  - PYREXIA [None]
